FAERS Safety Report 7618306-1 (Version None)
Quarter: 2011Q3

REPORT INFORMATION
  Report Type: 
  Country: None (occurrence: None)
  Receive Date: 20110718
  Receipt Date: 20110707
  Transmission Date: 20111222
  Serious: Yes (Hospitalization)
  Sender: FDA-Public Use
  Company Number: JP-ROCHE-784064

PATIENT
  Sex: Female
  Weight: 44 kg

DRUGS (11)
  1. CALCIUM CARBONATE [Concomitant]
     Route: 048
     Dates: start: 20020101
  2. FOLIC ACID [Concomitant]
     Route: 048
     Dates: start: 20020101
  3. CALFINA [Concomitant]
     Route: 048
     Dates: start: 20020101
  4. MAGNESIUM OXIDE [Concomitant]
     Route: 048
     Dates: start: 20020101
  5. CLARITHROMYCIN [Concomitant]
     Route: 048
     Dates: start: 20020101
  6. METHOTREXATE [Concomitant]
     Dosage: PERORAL AGENT
     Route: 048
     Dates: start: 20020101
  7. PREDNISOLONE [Concomitant]
     Route: 048
     Dates: start: 20020101
  8. ALENDRONATE SODIUM [Concomitant]
     Route: 048
     Dates: start: 20020101
  9. REBAMIPIDE [Concomitant]
     Route: 048
     Dates: start: 20020101
  10. SAWATENE [Concomitant]
     Route: 048
     Dates: start: 20020101
  11. ACTEMRA [Suspect]
     Indication: RHEUMATOID ARTHRITIS
     Route: 042
     Dates: start: 20110209, end: 20110502

REACTIONS (1)
  - PLEURISY [None]
